FAERS Safety Report 9320381 (Version 3)
Quarter: 2013Q3

REPORT INFORMATION
  Report Type: Report from Study
  Country: US (occurrence: US)
  Receive Date: 20130530
  Receipt Date: 20130708
  Transmission Date: 20140515
  Serious: Yes (Other)
  Sender: FDA-Public Use
  Company Number: US-GILEAD-2013-0075894

PATIENT
  Age: 35 Year
  Sex: Female

DRUGS (10)
  1. BLINDED DARUNAVIR [Suspect]
     Indication: HIV INFECTION
     Dosage: 300 MG, QD
     Dates: start: 20120816
  2. BLINDED EMTRICITABINE [Suspect]
     Indication: HIV INFECTION
     Dosage: 300 MG, QD
     Dates: start: 20120816
  3. BLINDED MARAVIROC [Suspect]
     Indication: HIV INFECTION
     Dosage: 300 MG, QD
     Dates: start: 20120816
  4. BLINDED PLACEBO [Suspect]
     Indication: HIV INFECTION
     Dosage: 300 MG, QD
     Dates: start: 20120816
  5. BLINDED RITONAVIR [Suspect]
     Indication: HIV INFECTION
     Dosage: 300 MG, QD
     Dates: start: 20120816
  6. BLINDED TENOFOVIR DISOPROXIL FUMARATE [Suspect]
     Indication: HIV INFECTION
     Dosage: 300 MG, QD
     Dates: start: 20120816
  7. EMTRICITABINE [Suspect]
     Indication: HIV INFECTION
     Dosage: 200 MG, QD
     Route: 048
     Dates: start: 20120816
  8. DARUNAVIR [Suspect]
     Indication: HIV INFECTION
     Dosage: 800 MG, QD
     Route: 048
     Dates: start: 20120816
  9. RITONAVIR [Suspect]
     Indication: HIV INFECTION
     Dosage: 100 MG, QD
     Route: 048
     Dates: start: 20120816
  10. ADVIL                              /00044201/ [Concomitant]
     Indication: DYSMENORRHOEA
     Dosage: UNK, PRN
     Route: 048

REACTIONS (1)
  - Abortion spontaneous [Recovered/Resolved]
